FAERS Safety Report 17856658 (Version 1)
Quarter: 2020Q2

REPORT INFORMATION
  Report Type: Other
  Country: US (occurrence: US)
  Receive Date: 20200603
  Receipt Date: 20200603
  Transmission Date: 20200714
  Serious: Yes (Hospitalization)
  Sender: FDA-Public Use
  Company Number: US-EMERGENT BIOSOLUTIONS,-20000360RG

PATIENT
  Sex: Male

DRUGS (28)
  1. PAMIDRONATE DISODIUM. [Suspect]
     Active Substance: PAMIDRONATE DISODIUM
     Route: 065
  2. NALOXONE HYDROCHLORIDE. [Suspect]
     Active Substance: NALOXONE HYDROCHLORIDE
     Indication: PRODUCT USED FOR UNKNOWN INDICATION
     Route: 065
  3. CEFEPIME HYDROCHLORIDE. [Suspect]
     Active Substance: CEFEPIME HYDROCHLORIDE
     Route: 065
  4. DAPTOMYCIN. [Suspect]
     Active Substance: DAPTOMYCIN
     Route: 065
  5. FLUCONAZOLE. [Suspect]
     Active Substance: FLUCONAZOLE
     Route: 065
  6. MACROGOL 3350 [Suspect]
     Active Substance: POLYETHYLENE GLYCOL 3350
     Route: 065
  7. PARACETAMOL [Suspect]
     Active Substance: ACETAMINOPHEN
     Route: 065
  8. TOBRAMYCIN. [Suspect]
     Active Substance: TOBRAMYCIN
     Route: 065
  9. ZOLPIDEM TARTRATE. [Suspect]
     Active Substance: ZOLPIDEM TARTRATE
     Route: 065
  10. DEXAMETHASONE. [Suspect]
     Active Substance: DEXAMETHASONE
     Route: 065
  11. LIDOCAINE. [Suspect]
     Active Substance: LIDOCAINE
     Route: 065
  12. MORPHINE SULFATE. [Suspect]
     Active Substance: MORPHINE SULFATE
     Route: 065
  13. TESTOSTERONE ENANTATE [Suspect]
     Active Substance: TESTOSTERONE
     Route: 065
  14. AMIODARONE HYDROCHLORIDE. [Suspect]
     Active Substance: AMIODARONE HYDROCHLORIDE
     Route: 065
  15. OMEPRAZOLE. [Suspect]
     Active Substance: OMEPRAZOLE
     Route: 065
  16. RANITIDINE HYDROCHLORIDE. [Suspect]
     Active Substance: RANITIDINE HYDROCHLORIDE
     Route: 065
  17. THALIDOMIDE [Suspect]
     Active Substance: THALIDOMIDE
     Route: 065
  18. VANCOMYCIN HYDROCHLORIDE. [Suspect]
     Active Substance: VANCOMYCIN HYDROCHLORIDE
     Route: 065
  19. FILGRASTIM [Suspect]
     Active Substance: FILGRASTIM
     Dosage: UNK
     Route: 065
  20. HYDROCODONE [Suspect]
     Active Substance: HYDROCODONE
     Dosage: UNK
     Route: 065
  21. MELOXICAM. [Suspect]
     Active Substance: MELOXICAM
     Route: 065
  22. MEROPENEM. [Suspect]
     Active Substance: MEROPENEM
     Route: 065
  23. PANTOPRAZOLE SODIUM. [Suspect]
     Active Substance: PANTOPRAZOLE SODIUM
     Dosage: UNK
     Route: 065
  24. HEPARIN SODIUM. [Suspect]
     Active Substance: HEPARIN SODIUM
     Route: 065
  25. ALPRAZOLAM. [Suspect]
     Active Substance: ALPRAZOLAM
     Route: 065
  26. CASPOFUNGIN ACETATE. [Suspect]
     Active Substance: CASPOFUNGIN ACETATE
     Dosage: UNK
     Route: 065
  27. DIPHENHYDRAMINE HYDROCHLORIDE. [Suspect]
     Active Substance: DIPHENHYDRAMINE HYDROCHLORIDE
     Route: 065
  28. PROMETHAZINE HYDROCHLORIDE. [Suspect]
     Active Substance: PROMETHAZINE HYDROCHLORIDE
     Route: 065

REACTIONS (15)
  - Oral candidiasis [Unknown]
  - White blood cell count decreased [Unknown]
  - Lethargy [Unknown]
  - Acute generalised exanthematous pustulosis [Unknown]
  - Pseudomonas infection [Unknown]
  - Streptococcal infection [Unknown]
  - Oropharyngeal pain [Unknown]
  - Haematocrit decreased [Unknown]
  - Atrial fibrillation [Unknown]
  - Febrile neutropenia [Unknown]
  - Pustular psoriasis [Unknown]
  - Back pain [Unknown]
  - Blood culture positive [Unknown]
  - Unresponsive to stimuli [Unknown]
  - Haemoglobin decreased [Unknown]
